FAERS Safety Report 10502913 (Version 1)
Quarter: 2014Q4

REPORT INFORMATION
  Report Type: Spontaneous
  Country: PL (occurrence: PL)
  Receive Date: 20141007
  Receipt Date: 20141007
  Transmission Date: 20150528
  Serious: Yes (Life-Threatening, Hospitalization, Other)
  Sender: FDA-Public Use
  Company Number: PL-PFIZER INC-2014272141

PATIENT
  Age: 36 Year
  Sex: Male

DRUGS (1)
  1. DALACIN C [Suspect]
     Active Substance: CLINDAMYCIN PHOSPHATE
     Indication: DENTAL CARE
     Dosage: 300 MG, 3X/DAY
     Dates: start: 20140925, end: 20140928

REACTIONS (11)
  - Vertigo [Recovering/Resolving]
  - Disorientation [Recovering/Resolving]
  - Disturbance in attention [Recovering/Resolving]
  - Dysuria [Unknown]
  - Nausea [Recovering/Resolving]
  - Hypertension [Recovering/Resolving]
  - Abnormal faeces [Unknown]
  - Mobility decreased [Recovering/Resolving]
  - Poisoning [Recovering/Resolving]
  - Constipation [Unknown]
  - Weight decreased [Recovered/Resolved]

NARRATIVE: CASE EVENT DATE: 20140928
